FAERS Safety Report 5249604-7 (Version None)
Quarter: 2007Q1

REPORT INFORMATION
  Report Type: 
  Country: None (occurrence: None)
  Receive Date: 20070228
  Receipt Date: 20060412
  Transmission Date: 20070707
  Serious: No
  Sender: FDA-Public Use
  Company Number: US-GLAXOSMITHKLINE-A0601583A

PATIENT
  Age: 61 Year
  Sex: Female

DRUGS (5)
  1. IMITREX [Suspect]
     Indication: MIGRAINE
     Dosage: 6MG AS REQUIRED
     Route: 058
  2. METHADONE HCL [Concomitant]
  3. ELAVIL [Concomitant]
  4. FIORICET [Concomitant]
  5. ZOFRAN [Concomitant]

REACTIONS (2)
  - CHEST PAIN [None]
  - THERAPEUTIC RESPONSE DECREASED [None]
